FAERS Safety Report 21076383 (Version 1)
Quarter: 2022Q3

REPORT INFORMATION
  Report Type: Spontaneous
  Country: US (occurrence: US)
  Receive Date: 20220713
  Receipt Date: 20220713
  Transmission Date: 20221027
  Serious: No
  Sender: FDA-Public Use
  Company Number: US-PFIZER INC-202200940947

PATIENT
  Age: 77 Year
  Sex: Female

DRUGS (1)
  1. PAXLOVID [Suspect]
     Active Substance: NIRMATRELVIR\RITONAVIR
     Indication: COVID-19 treatment
     Dosage: UNK
     Dates: start: 20220531, end: 20220607

REACTIONS (3)
  - Upper-airway cough syndrome [Recovered/Resolved with Sequelae]
  - Wheezing [Recovered/Resolved with Sequelae]
  - Incorrect product administration duration [Unknown]

NARRATIVE: CASE EVENT DATE: 20220531
